FAERS Safety Report 10415593 (Version 2)
Quarter: 2014Q4

REPORT INFORMATION
  Report Type: Spontaneous
  Country: US (occurrence: None)
  Receive Date: 20140604
  Receipt Date: 20141205
  Transmission Date: 20150528
  Serious: No
  Sender: FDA-Public Use
  Company Number: 163-POMAL-14021638

PATIENT
  Age: 84 Year
  Sex: Male
  Weight: 106.73 kg

DRUGS (9)
  1. POMALYST [Suspect]
     Active Substance: POMALIDOMIDE
     Indication: PLASMA CELL MYELOMA
     Route: 048
     Dates: start: 201311, end: 20131203
  2. VITAMIN B12 (CYANCOBALAMIN) [Concomitant]
  3. FLOMAX [Concomitant]
     Active Substance: TAMSULOSIN HYDROCHLORIDE
  4. LYRIC (DIFENIDOL HYDROCHLORIDE) [Concomitant]
  5. DECADRON [Concomitant]
     Active Substance: DEXAMETHASONE
  6. POTASSIUM (POTASSIUM) [Concomitant]
     Active Substance: POTASSIUM
  7. ZOMETA [Concomitant]
     Active Substance: ZOLEDRONIC ACID
  8. HCTZ (HYDROCHLOROTHIAZIDE) [Concomitant]
     Active Substance: HYDROCHLOROTHIAZIDE
  9. LEVAQUIN [Concomitant]
     Active Substance: LEVOFLOXACIN

REACTIONS (4)
  - Dizziness [None]
  - Drug dose omission [None]
  - Rash [None]
  - Muscle spasms [None]

NARRATIVE: CASE EVENT DATE: 2013
